FAERS Safety Report 22218260 (Version 1)
Quarter: 2023Q2

REPORT INFORMATION
  Report Type: Spontaneous
  Country: IT (occurrence: IT)
  Receive Date: 20230417
  Receipt Date: 20230417
  Transmission Date: 20230722
  Serious: Yes (Other)
  Sender: FDA-Public Use
  Company Number: None

PATIENT
  Age: 21 Year
  Sex: Female

DRUGS (3)
  1. LYRICA [Suspect]
     Active Substance: PREGABALIN
     Indication: Product used for unknown indication
     Dosage: 150 MILLIGRAM, TOTAL
     Route: 048
     Dates: start: 20230328, end: 20230328
  2. KETOPROFEN LYSINE [Suspect]
     Active Substance: KETOPROFEN LYSINE
     Indication: Product used for unknown indication
     Dosage: 80 MILLIGRAM,  TOTAL
     Route: 048
     Dates: start: 20230328, end: 20230328
  3. AMISULPRIDE [Suspect]
     Active Substance: AMISULPRIDE
     Indication: Product used for unknown indication
     Dosage: 300 MILLIGRAM, TOTAL
     Route: 048
     Dates: start: 20230328, end: 20230328

REACTIONS (3)
  - Abdominal pain upper [Recovering/Resolving]
  - Intentional self-injury [Unknown]
  - Drug abuse [Recovering/Resolving]

NARRATIVE: CASE EVENT DATE: 20230328
